FAERS Safety Report 7035891-1 (Version None)
Quarter: 2010Q4

REPORT INFORMATION
  Report Type: 
  Country: None (occurrence: None)
  Receive Date: 20101008
  Receipt Date: 20100930
  Transmission Date: 20110411
  Serious: Yes (Other)
  Sender: FDA-Public Use
  Company Number: US-SANOFI-AVENTIS-2010SA058958

PATIENT
  Age: 75 Year
  Sex: Male

DRUGS (9)
  1. PLAVIX [Suspect]
     Indication: STENT PLACEMENT
     Dates: start: 20100312
  2. TERAZOSIN HCL [Concomitant]
  3. INDAPAMIDE [Concomitant]
  4. GLYBURIDE [Concomitant]
  5. METOPROLOL TARTRATE [Concomitant]
  6. ASPIRIN [Concomitant]
  7. PROSCAR [Concomitant]
  8. AMLODIPINE [Concomitant]
  9. MONOPRIL [Concomitant]

REACTIONS (4)
  - ATRIAL FIBRILLATION [None]
  - BLOOD URIC ACID INCREASED [None]
  - GOUT [None]
  - OEDEMA PERIPHERAL [None]
